FAERS Safety Report 9342546 (Version 2)
Quarter: 2013Q2

REPORT INFORMATION
  Report Type: Spontaneous
  Country: GB (occurrence: GB)
  Receive Date: 20130611
  Receipt Date: 20130628
  Transmission Date: 20140414
  Serious: Yes (Other)
  Sender: FDA-Public Use
  Company Number: GB-ASTRAZENECA-2013SE40735

PATIENT
  Age: 63 Year
  Sex: Female

DRUGS (2)
  1. OMEPRAZOLE [Suspect]
     Route: 048
  2. VESICARE [Suspect]
     Route: 065

REACTIONS (4)
  - Barrett^s oesophagus [Unknown]
  - Hiatus hernia [Unknown]
  - Epigastric discomfort [Unknown]
  - Dyspepsia [Not Recovered/Not Resolved]
